FAERS Safety Report 16938729 (Version 1)
Quarter: 2019Q4

REPORT INFORMATION
  Report Type: Spontaneous
  Country: US (occurrence: US)
  Receive Date: 20190828
  Receipt Date: 20190828
  Transmission Date: 20200122
  Serious: Yes (Disabling, Other)
  Sender: FDA-Public Use
  Company Number: None

PATIENT
  Age: 55 Year
  Sex: Female
  Weight: 74.84 kg

DRUGS (7)
  1. BRIO INHALER [Concomitant]
  2. OMEPRAZOLE. [Concomitant]
     Active Substance: OMEPRAZOLE
  3. IMURAN [Concomitant]
     Active Substance: AZATHIOPRINE
  4. PREDNISONE. [Concomitant]
     Active Substance: PREDNISONE
  5. CENTRUM SILVER MULTIVITAMIN [Concomitant]
  6. NITROFURANTOIN MONOHYDRATE MACROCRYSTALS [Suspect]
     Active Substance: NITROFURANTOIN\NITROFURANTOIN MONOHYDRATE
     Indication: URINARY TRACT INFECTION
     Route: 048
     Dates: start: 20170510, end: 20190601
  7. VITAMIN D [Concomitant]
     Active Substance: VITAMIN D NOS

REACTIONS (6)
  - Autoimmune hepatitis [None]
  - Liver injury [None]
  - Skin induration [None]
  - Peripheral swelling [None]
  - Limb mass [None]
  - Pain in extremity [None]

NARRATIVE: CASE EVENT DATE: 201711
